FAERS Safety Report 12468300 (Version 1)
Quarter: 2016Q2

REPORT INFORMATION
  Report Type: Spontaneous
  Country: US (occurrence: US)
  Receive Date: 20160615
  Receipt Date: 20160615
  Transmission Date: 20160815
  Serious: No
  Sender: FDA-Public Use
  Company Number: US-JUBILANT CADISTA PHARMACEUTICALS-2015JUB00154

PATIENT
  Age: 66 Year
  Sex: Female
  Weight: 70.75 kg

DRUGS (2)
  1. CYCLOBENZAPRINE [Suspect]
     Active Substance: CYCLOBENZAPRINE
     Indication: NECK PAIN
     Dosage: UNK, TWICE
     Route: 048
     Dates: start: 201307
  2. UNSPECIFIED BLOOD PRESSURE MEDICATION [Concomitant]
     Active Substance: UNSPECIFIED INGREDIENT

REACTIONS (5)
  - Muscle twitching [Recovered/Resolved]
  - Dehydration [Unknown]
  - Pain [Unknown]
  - Muscle spasms [Recovered/Resolved]
  - Abdominal pain upper [Unknown]

NARRATIVE: CASE EVENT DATE: 201307
